FAERS Safety Report 9943802 (Version 2)
Quarter: 2014Q1

REPORT INFORMATION
  Report Type: Report from Study
  Country: US (occurrence: US)
  Receive Date: 20140303
  Receipt Date: 20140303
  Transmission Date: 20141002
  Serious: No
  Sender: FDA-Public Use
  Company Number: US-ABBVIE-12P-163-0994048-00

PATIENT
  Age: 46 Year
  Sex: Male

DRUGS (2)
  1. HUMIRA [Suspect]
     Indication: CROHN^S DISEASE
     Dates: start: 20120906, end: 201211
  2. DICYCLOMINE [Concomitant]
     Indication: PRODUCT USED FOR UNKNOWN INDICATION

REACTIONS (14)
  - Feeling abnormal [Not Recovered/Not Resolved]
  - Injection site pain [Not Recovered/Not Resolved]
  - Injection site pain [Not Recovered/Not Resolved]
  - Migraine [Recovering/Resolving]
  - Headache [Recovered/Resolved]
  - Headache [Recovered/Resolved]
  - Depressed mood [Unknown]
  - Frequent bowel movements [Unknown]
  - Constipation [Unknown]
  - Headache [Recovering/Resolving]
  - Blood pressure increased [Not Recovered/Not Resolved]
  - Asthenia [Unknown]
  - Thinking abnormal [Recovering/Resolving]
  - Drug ineffective [Unknown]
